FAERS Safety Report 16139799 (Version 3)
Quarter: 2019Q2

REPORT INFORMATION
  Report Type: Report from Study
  Country: US (occurrence: US)
  Receive Date: 20190401
  Receipt Date: 20190611
  Transmission Date: 20190711
  Serious: Yes (Hospitalization)
  Sender: FDA-Public Use
  Company Number: US-ROCHE-2290540

PATIENT
  Age: 56 Year
  Sex: Male
  Weight: 124 kg

DRUGS (32)
  1. DOXYCYCLINE. [Concomitant]
     Active Substance: DOXYCYCLINE
     Indication: RASH
     Route: 065
     Dates: start: 20181203
  2. TRIAMCINOLONE ACETONIDE. [Concomitant]
     Active Substance: TRIAMCINOLONE ACETONIDE
     Indication: RASH
     Route: 065
     Dates: start: 20180511
  3. PREDNISONE. [Concomitant]
     Active Substance: PREDNISONE
     Indication: PULMONARY EMBOLISM
     Route: 065
     Dates: start: 20190325, end: 20190329
  4. NORMAL SALINE [Concomitant]
     Active Substance: SODIUM CHLORIDE
     Route: 065
     Dates: start: 20190412, end: 20190412
  5. COBIMETINIB. [Suspect]
     Active Substance: COBIMETINIB
     Indication: TRANSITIONAL CELL CARCINOMA
     Dosage: ON DAYS 1-21 OF EACH AND 7 DAYS OFF OF EACH 28 DAY CYCLE.?DATE OF MOST RECENT DOSE (40 MG) OF COBIME
     Route: 048
     Dates: start: 20180423
  6. FERREX [Concomitant]
     Active Substance: FERRIC POLYSACCHARIDE COMPLEX
     Route: 065
     Dates: start: 1998
  7. CLINDAMYCIN. [Concomitant]
     Active Substance: CLINDAMYCIN
     Indication: RASH
     Route: 065
     Dates: start: 20181203
  8. DOXYCYCLINE. [Concomitant]
     Active Substance: DOXYCYCLINE
     Indication: RASH
     Route: 065
     Dates: start: 20180511
  9. PROCHLORPERAZINE. [Concomitant]
     Active Substance: PROCHLORPERAZINE
     Indication: PROPHYLAXIS OF NAUSEA AND VOMITING
     Route: 065
     Dates: start: 20180618
  10. GLUCOSAMINE [Concomitant]
     Active Substance: GLUCOSAMINE
     Route: 065
     Dates: start: 1998
  11. ESOMEPRAZOLE. [Concomitant]
     Active Substance: ESOMEPRAZOLE MAGNESIUM
     Indication: PROPHYLAXIS
     Route: 065
     Dates: start: 20190311, end: 20190328
  12. NORMAL SALINE [Concomitant]
     Active Substance: SODIUM CHLORIDE
     Indication: BLOOD CREATININE INCREASED
     Route: 065
     Dates: start: 20190408, end: 20190408
  13. ATEZOLIZUMAB. [Suspect]
     Active Substance: ATEZOLIZUMAB
     Indication: TRANSITIONAL CELL CARCINOMA
     Dosage: ON DAYS 1 AND 15 OF EACH 28 DAY CYCLE.?DATE OF MOST RECENT DOSE (840 MG) OF ATEZOLIZUMAB PRIOR TO SA
     Route: 042
     Dates: start: 20180423
  14. LOMOTIL [ATROPINE SULFATE;DIPHENOXYLATE HYDROCHLORIDE] [Concomitant]
     Indication: DIARRHOEA
     Route: 065
     Dates: start: 20180521
  15. TRIAMCINOLONE [Concomitant]
     Active Substance: TRIAMCINOLONE
     Indication: RASH
     Route: 065
     Dates: start: 20181203
  16. AMLODIPINE [Concomitant]
     Active Substance: AMLODIPINE BESYLATE
     Indication: HYPERTENSION
     Route: 065
     Dates: start: 201707
  17. ALBUTEROL [SALBUTAMOL] [Concomitant]
     Active Substance: ALBUTEROL
     Indication: DYSPNOEA
  18. PREDNISONE. [Concomitant]
     Active Substance: PREDNISONE
     Indication: PROPHYLAXIS
     Route: 065
     Dates: start: 20190311, end: 20190321
  19. DILAUDID [Concomitant]
     Active Substance: HYDROMORPHONE HYDROCHLORIDE
     Indication: ABDOMINAL PAIN LOWER
     Route: 065
     Dates: start: 20190520, end: 20190523
  20. MEROPENEM. [Concomitant]
     Active Substance: MEROPENEM
     Indication: UROSEPSIS
     Route: 065
     Dates: start: 20190520, end: 20190523
  21. CARVEDILOL. [Concomitant]
     Active Substance: CARVEDILOL
     Indication: HYPERTENSION
     Route: 065
     Dates: start: 201707
  22. MAGNESIUM [Concomitant]
     Active Substance: MAGNESIUM
     Route: 065
     Dates: start: 1998
  23. ALBUTEROL [SALBUTAMOL] [Concomitant]
     Active Substance: ALBUTEROL
     Indication: WHEEZING
     Route: 065
     Dates: start: 20180903
  24. MORPHINE SULFATE. [Concomitant]
     Active Substance: MORPHINE SULFATE
     Indication: ABDOMINAL PAIN LOWER
     Route: 065
     Dates: start: 20190520, end: 20190523
  25. FENTANYL. [Concomitant]
     Active Substance: FENTANYL
     Dosage: PROCEDURE COLONOSCOPY
     Route: 065
     Dates: start: 20190328, end: 20190328
  26. CARDIZEM [Concomitant]
     Active Substance: DILTIAZEM HYDROCHLORIDE
     Indication: ATRIAL FIBRILLATION
     Route: 065
     Dates: start: 20190520, end: 20190523
  27. HYDROCORTISONE. [Concomitant]
     Active Substance: HYDROCORTISONE
     Indication: RASH
     Route: 065
     Dates: start: 20180511
  28. NORVASC [Concomitant]
     Active Substance: AMLODIPINE BESYLATE
     Indication: PROPHYLAXIS
     Dosage: PROPHYLAXIS BLOOD PRESSURE
     Route: 065
     Dates: start: 20190327, end: 20190327
  29. EMLA [LIDOCAINE;PRILOCAINE] [Concomitant]
     Indication: PAIN
     Route: 065
     Dates: start: 20180419
  30. CLINDAMYCIN. [Concomitant]
     Active Substance: CLINDAMYCIN
     Indication: RASH
     Route: 065
     Dates: start: 20180507
  31. ZOFRAN [Concomitant]
     Active Substance: ONDANSETRON HYDROCHLORIDE
     Indication: PROPHYLAXIS OF NAUSEA AND VOMITING
     Route: 065
     Dates: start: 20180618
  32. PANTOPRAZOLE [Concomitant]
     Active Substance: PANTOPRAZOLE
     Indication: PROPHYLAXIS
     Route: 065
     Dates: start: 20190328

REACTIONS (1)
  - Pulmonary embolism [Not Recovered/Not Resolved]

NARRATIVE: CASE EVENT DATE: 20190325
